FAERS Safety Report 10565349 (Version 3)
Quarter: 2014Q4

REPORT INFORMATION
  Report Type: Report from Study
  Country: AU (occurrence: AU)
  Receive Date: 20141105
  Receipt Date: 20141208
  Transmission Date: 20150529
  Serious: Yes (Other)
  Sender: FDA-Public Use
  Company Number: PHHY2013AU038271

PATIENT
  Sex: Male

DRUGS (1)
  1. SANDOSTATIN LAR DEPOT [Suspect]
     Active Substance: OCTREOTIDE ACETATE
     Indication: CARCINOID SYNDROME
     Dosage: 30 MG
     Route: 030

REACTIONS (1)
  - Brain neoplasm [Unknown]
